FAERS Safety Report 5623060-9 (Version None)
Quarter: 2008Q1

REPORT INFORMATION
  Report Type: 
  Country: None (occurrence: None)
  Receive Date: 20080212
  Receipt Date: 20080131
  Transmission Date: 20080703
  Serious: Yes (Hospitalization)
  Sender: FDA-Public Use
  Company Number: JP-ELI_LILLY_AND_COMPANY-JP200801003692

PATIENT
  Sex: Female
  Weight: 45.2 kg

DRUGS (12)
  1. OLANZAPINE [Suspect]
     Indication: SCHIZOPHRENIA
     Dosage: 10 MG, DAILY (1/D)
     Route: 048
     Dates: start: 20071005, end: 20071206
  2. BARNETIL [Concomitant]
     Indication: SCHIZOAFFECTIVE DISORDER
     Dosage: 1800 MG, DAILY (1/D)
     Route: 048
     Dates: end: 20071206
  3. BARNETIL [Concomitant]
     Dosage: 1200 MG, DAILY (1/D)
     Route: 048
     Dates: start: 20071207, end: 20071213
  4. BARNETIL [Concomitant]
     Dosage: 900 MG, DAILY (1/D)
     Route: 048
     Dates: start: 20071214, end: 20080108
  5. BARNETIL [Concomitant]
     Dosage: 600 MG, DAILY (1/D)
     Route: 048
     Dates: start: 20080109, end: 20080115
  6. BARNETIL [Concomitant]
     Dosage: 150 MG, DAILY (1/D)
     Route: 048
     Dates: start: 20080116
  7. SETOUS [Concomitant]
     Dosage: 150 MG, DAILY (1/D)
     Route: 048
     Dates: end: 20071127
  8. VALERIN [Concomitant]
     Dosage: 600 MG, DAILY (1/D)
     Route: 048
     Dates: start: 20071029
  9. PROMETHAZINE [Concomitant]
     Dosage: 75 MG, DAILY (1/D)
     Route: 048
     Dates: end: 20071129
  10. LEVOTOMIN [Concomitant]
     Dosage: 50 MG, DAILY (1/D)
     Route: 048
  11. ROHYPNOL [Concomitant]
     Dosage: 2 MG, DAILY (1/D)
     Route: 048
  12. SENNARIDE [Concomitant]
     Route: 048

REACTIONS (2)
  - GRANULOCYTE COUNT DECREASED [None]
  - WHITE BLOOD CELL COUNT DECREASED [None]
